FAERS Safety Report 14923721 (Version 1)
Quarter: 2018Q2

REPORT INFORMATION
  Report Type: Spontaneous
  Country: CA (occurrence: CA)
  Receive Date: 20180522
  Receipt Date: 20180522
  Transmission Date: 20180711
  Serious: Yes (Other)
  Sender: FDA-Public Use
  Company Number: CA-PFIZER INC-2018200341

PATIENT
  Age: 56 Year
  Sex: Male

DRUGS (2)
  1. MORPHINE SULFATE. [Suspect]
     Active Substance: MORPHINE SULFATE
     Indication: COLITIS ULCERATIVE
     Dosage: 5 MG/KG, CYCLIC
     Route: 042
     Dates: start: 20180313
  2. MORPHINE SULFATE. [Suspect]
     Active Substance: MORPHINE SULFATE
     Dosage: 5 MG/KG, CYCLIC
     Route: 042
     Dates: start: 20180510

REACTIONS (8)
  - Drug ineffective [Unknown]
  - Sinusitis [Unknown]
  - Gout [Unknown]
  - Pyrexia [Unknown]
  - Haematochezia [Unknown]
  - Influenza [Unknown]
  - Diarrhoea [Unknown]
  - Nasopharyngitis [Unknown]
